FAERS Safety Report 16469540 (Version 1)
Quarter: 2019Q3

REPORT INFORMATION
  Report Type: Spontaneous
  Country: US (occurrence: US)
  Receive Date: 20190622
  Receipt Date: 20190622
  Transmission Date: 20191004
  Serious: Yes (Other)
  Sender: FDA-Public Use
  Company Number: None

PATIENT
  Age: 62 Year
  Sex: Female
  Weight: 54 kg

DRUGS (14)
  1. VITAMIN D [Concomitant]
     Active Substance: VITAMIN D NOS
  2. SYNTHROID [Concomitant]
     Active Substance: LEVOTHYROXINE SODIUM
  3. PREDNISONE 20 MG TABLETS [Suspect]
     Active Substance: PREDNISONE
     Indication: LIMB INJURY
     Dosage: ?          QUANTITY:1 TABLET(S);?
     Route: 048
     Dates: start: 20190619, end: 20190622
  4. TECFIDERA [Concomitant]
     Active Substance: DIMETHYL FUMARATE
  5. GABAPENTIN. [Concomitant]
     Active Substance: GABAPENTIN
  6. SINGULAIR [Concomitant]
     Active Substance: MONTELUKAST SODIUM
  7. FLUTICASONE. [Concomitant]
     Active Substance: FLUTICASONE
  8. DIAZEPAM. [Concomitant]
     Active Substance: DIAZEPAM
  9. LORATA-D [Concomitant]
  10. METOPROLOL. [Concomitant]
     Active Substance: METOPROLOL
  11. RANITIDINE. [Concomitant]
     Active Substance: RANITIDINE
  12. MODAFINIL. [Concomitant]
     Active Substance: MODAFINIL
  13. ZOFRAN [Concomitant]
     Active Substance: ONDANSETRON HYDROCHLORIDE
  14. LAMOTRIGINE. [Concomitant]
     Active Substance: LAMOTRIGINE

REACTIONS (4)
  - Drug interaction [None]
  - Fatigue [None]
  - Product quality issue [None]
  - Hypotension [None]

NARRATIVE: CASE EVENT DATE: 20190619
